FAERS Safety Report 18513253 (Version 3)
Quarter: 2020Q4

REPORT INFORMATION
  Report Type: Spontaneous
  Country: US (occurrence: US)
  Receive Date: 20201117
  Receipt Date: 20201230
  Transmission Date: 20210114
  Serious: Yes (Hospitalization, Other)
  Sender: FDA-Public Use
  Company Number: US-GILEAD-2020-0504315

PATIENT
  Age: 68 Year
  Sex: Male

DRUGS (8)
  1. INTERLEUKIN-6 INHIBITOR (TOCILIZUMAB) [Suspect]
     Active Substance: TOCILIZUMAB
     Indication: COVID-19
     Route: 065
  2. TOCILIZUMAB. [Suspect]
     Active Substance: TOCILIZUMAB
     Indication: COVID-19
     Dosage: 1 DOSAGE FORM
     Route: 065
     Dates: start: 2020, end: 2020
  3. VANCOMYCIN [Concomitant]
     Active Substance: VANCOMYCIN
  4. VEKLURY [Suspect]
     Active Substance: REMDESIVIR
     Indication: COVID-19
     Dosage: UNK
     Route: 042
     Dates: start: 2020, end: 2020
  5. AZITHROMYCIN ANHYDROUS. [Concomitant]
     Active Substance: AZITHROMYCIN ANHYDROUS
  6. OXYGEN. [Concomitant]
     Active Substance: OXYGEN
     Dosage: 4 L
  7. HYDROXYCHLOROQUINE [Suspect]
     Active Substance: HYDROXYCHLOROQUINE
     Indication: COVID-19
     Dosage: 5 DOSAGE FORM
     Route: 065
     Dates: start: 2020, end: 2020
  8. CEFEPIME [Concomitant]
     Active Substance: CEFEPIME HYDROCHLORIDE

REACTIONS (9)
  - Off label use [Unknown]
  - Blood immunoglobulin G increased [Unknown]
  - Gastrointestinal wall thickening [Unknown]
  - Cytomegalovirus enterocolitis [Unknown]
  - Cytomegalovirus colitis [Unknown]
  - Cytomegalovirus viraemia [Unknown]
  - Large intestinal ulcer [Unknown]
  - Hypovolaemic shock [Unknown]
  - Diarrhoea [Unknown]

NARRATIVE: CASE EVENT DATE: 2020
